FAERS Safety Report 4417636-4 (Version None)
Quarter: 2004Q2

REPORT INFORMATION
  Report Type: 
  Country: None (occurrence: None)
  Receive Date: 20040625
  Receipt Date: 20040513
  Transmission Date: 20050107
  Serious: Yes (Hospitalization)
  Sender: FDA-Public Use
  Company Number: 206511

PATIENT
  Age: 45 Year
  Sex: Female

DRUGS (5)
  1. AVASTIN [Suspect]
     Indication: COLORECTAL CANCER METASTATIC
     Dosage: 300 MG, Q2W; INTRAVENOUS
     Route: 036
     Dates: start: 20040322, end: 20040419
  2. FLUOROURACIL [Concomitant]
  3. MORPHINE [Concomitant]
  4. SKELAXIN [Concomitant]
  5. LASIX [Concomitant]

REACTIONS (1)
  - GASTROINTESTINAL PERFORATION [None]
